FAERS Safety Report 7723314-6 (Version None)
Quarter: 2011Q3

REPORT INFORMATION
  Report Type: 
  Country: None (occurrence: None)
  Receive Date: 20110901
  Receipt Date: 20110901
  Transmission Date: 20111222
  Serious: Yes (Other)
  Sender: FDA-Public Use
  Company Number: None

PATIENT
  Age: 44 Year
  Sex: Male
  Weight: 83.914 kg

DRUGS (1)
  1. PROPECIA [Suspect]
     Indication: ALOPECIA
     Dosage: 1 TABLET
     Route: 048
     Dates: start: 20110212, end: 20110711

REACTIONS (3)
  - ANXIETY [None]
  - PALPITATIONS [None]
  - HYPERTENSION [None]
